FAERS Safety Report 13424072 (Version 3)
Quarter: 2017Q2

REPORT INFORMATION
  Report Type: Spontaneous
  Country: US (occurrence: US)
  Receive Date: 20170410
  Receipt Date: 20170428
  Transmission Date: 20170830
  Serious: Yes (Death, Hospitalization)
  Sender: FDA-Public Use
  Company Number: US-UNITED THERAPEUTICS-UNT-2017-004756

PATIENT
  Age: 70 Year
  Sex: Female
  Weight: 56.69 kg

DRUGS (3)
  1. ADEMPAS [Concomitant]
     Active Substance: RIOCIGUAT
     Indication: PRODUCT USED FOR UNKNOWN INDICATION
  2. REMODULIN [Suspect]
     Active Substance: TREPROSTINIL
     Indication: PULMONARY HYPERTENSION
     Dosage: 0.187 ?G/KG, CONTINUING
     Route: 041
     Dates: start: 20140331
  3. REMODULIN [Suspect]
     Active Substance: TREPROSTINIL
     Dosage: 0.182 ?G/KG, CONTINUING
     Route: 041

REACTIONS (2)
  - Pulmonary arterial hypertension [Fatal]
  - Klebsiella bacteraemia [Fatal]

NARRATIVE: CASE EVENT DATE: 20170401
